FAERS Safety Report 17826266 (Version 3)
Quarter: 2020Q3

REPORT INFORMATION
  Report Type: Report from Study
  Country: US (occurrence: US)
  Receive Date: 20200526
  Receipt Date: 20200804
  Transmission Date: 20201102
  Serious: Yes (Death, Life-Threatening, Other)
  Sender: FDA-Public Use
  Company Number: US-SA-2020SA095180

PATIENT

DRUGS (10)
  1. CEFTRIAXONE ALPHAPHARM [Concomitant]
     Indication: PNEUMONIA
     Dosage: 1 G, QD
     Route: 042
     Dates: start: 20200329, end: 20200401
  2. VANCOMYCIN [Concomitant]
     Active Substance: VANCOMYCIN
     Dosage: 1000 MG, 1X
     Route: 042
     Dates: start: 20200406, end: 20200406
  3. LINEZOLID. [Concomitant]
     Active Substance: LINEZOLID
     Indication: LUNG INFILTRATION
     Dosage: 600 MG, BID
     Route: 042
     Dates: start: 20200406, end: 20200408
  4. CEFEPIME [Concomitant]
     Active Substance: CEFEPIME HYDROCHLORIDE
     Indication: LUNG INFILTRATION
     Dosage: 2 G, BID
     Route: 042
     Dates: start: 20200401, end: 20200403
  5. VANCOMYCIN [Concomitant]
     Active Substance: VANCOMYCIN
     Indication: SEPSIS
     Dosage: 1500 MG, QD
     Route: 042
     Dates: start: 20200401, end: 20200403
  6. MEROPENEM. [Concomitant]
     Active Substance: MEROPENEM
     Indication: PRODUCT USED FOR UNKNOWN INDICATION
     Dosage: 500 MG, BID
     Route: 042
     Dates: start: 20200403, end: 20200408
  7. AZITHROMYCIN ANHYDROUS. [Concomitant]
     Active Substance: AZITHROMYCIN ANHYDROUS
     Indication: LUNG INFILTRATION
     Dosage: 500 MG, QD
     Route: 042
     Dates: start: 20200329, end: 20200330
  8. HYDROXYCHLOROQUINE [Concomitant]
     Active Substance: HYDROXYCHLOROQUINE
     Indication: CORONAVIRUS INFECTION
     Dosage: 600 MG, BID
     Route: 048
     Dates: start: 20200328, end: 20200330
  9. SARILUMAB [Suspect]
     Active Substance: SARILUMAB
     Indication: COVID-19
     Dosage: REGN MAB1 200 MG, 1X
     Route: 042
     Dates: start: 20200329, end: 20200329
  10. MICAFUNGIN. [Concomitant]
     Active Substance: MICAFUNGIN SODIUM
     Indication: LUNG INFILTRATION
     Dosage: 100 MG, QD
     Route: 042
     Dates: start: 20200406, end: 20200408

REACTIONS (6)
  - Aspartate aminotransferase increased [Unknown]
  - Cholecystitis [Not Recovered/Not Resolved]
  - Septic shock [Fatal]
  - Encephalopathy [Not Recovered/Not Resolved]
  - Acute kidney injury [Not Recovered/Not Resolved]
  - Alanine aminotransferase increased [Unknown]

NARRATIVE: CASE EVENT DATE: 20200330
